FAERS Safety Report 8980065 (Version 3)
Quarter: 2013Q2

REPORT INFORMATION
  Report Type: Spontaneous
  Country: CH (occurrence: CH)
  Receive Date: 20121221
  Receipt Date: 20130426
  Transmission Date: 20140414
  Serious: Yes (Hospitalization, Other)
  Sender: FDA-Public Use
  Company Number: CH-PFIZER INC-2012324874

PATIENT
  Age: 82 Year
  Sex: Female
  Weight: 65.7 kg

DRUGS (14)
  1. METHOTREXATE SODIUM [Suspect]
     Indication: RHEUMATOID ARTHRITIS
     Dosage: 10 MG, WEEKLY (ON WEDNESDAYS)
     Route: 048
     Dates: start: 20120312, end: 20120709
  2. PANTOZOL [Interacting]
     Dosage: 40 MG, 1X/DAY
     Route: 048
  3. CO-AMOXI [Interacting]
     Indication: URINARY TRACT INFECTION
     Dosage: 625 MG, 3X/DAY
     Route: 048
     Dates: start: 20120710, end: 20120716
  4. LUDIOMIL [Concomitant]
     Dosage: 25 MG, 2X/DAY
     Route: 048
  5. PRADAXA [Concomitant]
     Indication: HYPERTENSIVE HEART DISEASE
     Dosage: 110 MG, 2X/DAY
     Route: 065
  6. ACIDUM FOLICUM STREULI [Concomitant]
     Dosage: 2.1429 MG (5 MG,3 IN 1 WK)
     Route: 048
  7. BECOZYME FORTE [Concomitant]
     Dosage: 1 DF, 1X/DAY
     Route: 048
  8. DIGOXIN [Concomitant]
     Indication: HYPERTENSIVE HEART DISEASE
     Dosage: 0.25 MG, 1X/DAY, MONDAY TO FRIDAY
     Route: 048
  9. LYRICA [Concomitant]
     Dosage: 25 MG, 2X/DAY
     Route: 048
  10. NOVALGIN [Concomitant]
     Dosage: 30 GTT, 2X/DAY
     Route: 048
  11. TORASEMIDE [Concomitant]
     Dosage: 5 MG, 1X/DAY
     Route: 048
  12. VALIUM [Concomitant]
     Dosage: 5 MG, 1X/DAY
     Route: 048
  13. DUROGESIC [Concomitant]
     Dosage: 50 MCG/H (50 DOSAGE FORMS,1 IN 3 D)
     Route: 003
  14. TRAMADOL [Concomitant]
     Dosage: 5 GTT, AS NEEDED
     Route: 048

REACTIONS (6)
  - Drug interaction [Unknown]
  - Stomatitis [Recovered/Resolved]
  - Pancytopenia [Recovered/Resolved]
  - Anaemia [Recovered/Resolved]
  - Thrombocytopenia [Recovered/Resolved]
  - Neutropenia [Recovered/Resolved]
